FAERS Safety Report 5726068-8 (Version None)
Quarter: 2008Q2

REPORT INFORMATION
  Report Type: 
  Country: None (occurrence: None)
  Receive Date: 20080502
  Receipt Date: 20080423
  Transmission Date: 20081010
  Serious: Yes (Other)
  Sender: FDA-Public Use
  Company Number: US-AMGEN-STX267121

PATIENT
  Sex: Female
  Weight: 69 kg

DRUGS (6)
  1. ENBREL [Suspect]
     Indication: PSORIATIC ARTHROPATHY
     Route: 058
     Dates: start: 20080118, end: 20080222
  2. PLAQUENIL [Concomitant]
     Route: 065
  3. PREDNISONE [Concomitant]
     Indication: PSORIATIC ARTHROPATHY
     Route: 065
  4. KEPPRA [Concomitant]
     Route: 065
  5. TRILEPTAL [Concomitant]
     Route: 065
  6. OMEPRAZOLE [Concomitant]
     Route: 065

REACTIONS (1)
  - PARTIAL SEIZURES [None]
